FAERS Safety Report 14251616 (Version 1)
Quarter: 2017Q4

REPORT INFORMATION
  Report Type: Spontaneous
  Country: US (occurrence: US)
  Receive Date: 20171205
  Receipt Date: 20171205
  Transmission Date: 20180321
  Serious: No
  Sender: FDA-Public Use
  Company Number: US-LEADIANT BIOSCIENCES INC-2017STPI000520

PATIENT
  Sex: Male

DRUGS (5)
  1. LOMUSTINE. [Concomitant]
     Active Substance: LOMUSTINE
  2. COLACE [Concomitant]
     Active Substance: DOCUSATE SODIUM
  3. MATULANE [Suspect]
     Active Substance: PROCARBAZINE HYDROCHLORIDE
     Indication: BRAIN NEOPLASM MALIGNANT
     Dosage: 100MG, QD
     Route: 048
     Dates: start: 20170209
  4. LAMICTAL [Concomitant]
     Active Substance: LAMOTRIGINE
  5. KLONOPIN [Concomitant]
     Active Substance: CLONAZEPAM

REACTIONS (1)
  - Nausea [Not Recovered/Not Resolved]
